FAERS Safety Report 21778436 (Version 1)
Quarter: 2022Q4

REPORT INFORMATION
  Report Type: Spontaneous
  Country: ES (occurrence: ES)
  Receive Date: 20221226
  Receipt Date: 20221226
  Transmission Date: 20230113
  Serious: Yes (Other)
  Sender: FDA-Public Use
  Company Number: ES-ELI_LILLY_AND_COMPANY-ES202210012214

PATIENT
  Age: 56 Year
  Sex: Female

DRUGS (2)
  1. FULVESTRANT [Suspect]
     Active Substance: FULVESTRANT
     Indication: Product used for unknown indication
     Dosage: 2 DOSAGE FORM, Q2W (EVERY 14 DAYS)
     Route: 065
  2. ABEMACICLIB [Suspect]
     Active Substance: ABEMACICLIB
     Indication: Breast cancer metastatic
     Dosage: 300 MG, QD (150 MG, BID)
     Route: 048
     Dates: start: 20221020

REACTIONS (13)
  - Immunodeficiency [Recovering/Resolving]
  - Appetite disorder [Unknown]
  - Fear of eating [Unknown]
  - Retching [Not Recovered/Not Resolved]
  - Malaise [Unknown]
  - Productive cough [Not Recovered/Not Resolved]
  - Abdominal distension [Recovering/Resolving]
  - Oropharyngeal discomfort [Unknown]
  - Arthralgia [Not Recovered/Not Resolved]
  - Fatigue [Unknown]
  - Vomiting [Not Recovered/Not Resolved]
  - Asthenia [Unknown]
  - Decreased appetite [Unknown]
